FAERS Safety Report 9403151 (Version 1)
Quarter: 2013Q3

REPORT INFORMATION
  Report Type: Spontaneous
  Country: US (occurrence: None)
  Receive Date: 20130715
  Receipt Date: 20130715
  Transmission Date: 20140515
  Serious: Yes (Other)
  Sender: FDA-Public Use
  Company Number: None

PATIENT
  Age: 85 Year
  Sex: Female

DRUGS (2)
  1. DULERA [Suspect]
     Indication: CHRONIC OBSTRUCTIVE PULMONARY DISEASE
     Dosage: 2 PUFFS, 2XDAY, ORAL INHALE
     Route: 055
     Dates: start: 20130319, end: 20130621
  2. DULERA [Suspect]
     Indication: ASTHMA
     Dosage: 2 PUFFS, 2XDAY, ORAL INHALE
     Route: 055
     Dates: start: 20130319, end: 20130621

REACTIONS (6)
  - Throat tightness [None]
  - Syncope [None]
  - Chest discomfort [None]
  - Headache [None]
  - Vision blurred [None]
  - Tremor [None]
